FAERS Safety Report 25958317 (Version 1)
Quarter: 2025Q4

REPORT INFORMATION
  Report Type: Spontaneous
  Country: EU (occurrence: EU)
  Receive Date: 20251024
  Receipt Date: 20251024
  Transmission Date: 20260117
  Serious: Yes (Other)
  Sender: BRISTOL-MYERS SQUIBB COMPANY
  Company Number: EU-BRISTOL-MYERS SQUIBB COMPANY-2025-144268

PATIENT
  Age: 66 Year
  Sex: Male

DRUGS (4)
  1. IPILIMUMAB [Suspect]
     Active Substance: IPILIMUMAB
     Indication: Renal cell carcinoma
  2. IPILIMUMAB [Suspect]
     Active Substance: IPILIMUMAB
  3. NIVOLUMAB [Suspect]
     Active Substance: NIVOLUMAB
     Indication: Renal cell carcinoma
  4. NIVOLUMAB [Suspect]
     Active Substance: NIVOLUMAB

REACTIONS (5)
  - Hyperthyroidism [Unknown]
  - Hepatotoxicity [Recovering/Resolving]
  - Renal failure [Unknown]
  - Malignant neoplasm progression [Unknown]
  - Hepatitis [Unknown]

NARRATIVE: CASE EVENT DATE: 20250127
